FAERS Safety Report 10786367 (Version 1)
Quarter: 2015Q1

REPORT INFORMATION
  Report Type: Spontaneous
  Country: US (occurrence: US)
  Receive Date: 20150211
  Receipt Date: 20150211
  Transmission Date: 20150721
  Serious: No
  Sender: FDA-Public Use
  Company Number: US-GLAXOSMITHKLINE-A0695626A

PATIENT

DRUGS (1)
  1. LAMICTAL [Suspect]
     Active Substance: LAMOTRIGINE
     Indication: SEIZURE
     Route: 048
     Dates: start: 20070827

REACTIONS (3)
  - Emotional disorder [Unknown]
  - Unable to afford prescribed medication [Unknown]
  - Negativism [Unknown]

NARRATIVE: CASE EVENT DATE: 2007
